FAERS Safety Report 8289850-1 (Version None)
Quarter: 2012Q2

REPORT INFORMATION
  Report Type: 
  Country: None (occurrence: None)
  Receive Date: 20120417
  Receipt Date: 20120412
  Transmission Date: 20120825
  Serious: No
  Sender: FDA-Public Use
  Company Number: US-PFIZER INC-2012092061

PATIENT
  Sex: Female
  Weight: 98 kg

DRUGS (7)
  1. ALDACTONE [Suspect]
     Indication: BLOOD TESTOSTERONE INCREASED
  2. LEVOTHYROXINE [Concomitant]
     Indication: HYPOTHYROIDISM
     Dosage: 100 UG, UNK
  3. ALDACTONE [Suspect]
     Indication: POLYCYSTIC OVARIES
  4. SPIRONOLACTONE [Suspect]
     Indication: VIRILISM
     Dosage: 25 MG, 1X/DAY
     Route: 048
     Dates: start: 20030101
  5. SPIRONOLACTONE [Suspect]
     Indication: BLOOD TESTOSTERONE INCREASED
  6. ALDACTONE [Suspect]
     Indication: VIRILISM
     Dosage: 25 MG, 1X/DAY
     Route: 048
     Dates: end: 20030101
  7. SPIRONOLACTONE [Suspect]
     Indication: POLYCYSTIC OVARIES

REACTIONS (9)
  - CHRONIC OBSTRUCTIVE PULMONARY DISEASE [None]
  - ASTHMA [None]
  - OSTEOPENIA [None]
  - MUSCLE DISORDER [None]
  - BLOOD CHOLESTEROL INCREASED [None]
  - HYPERTENSION [None]
  - FURUNCLE [None]
  - ALOPECIA [None]
  - MYALGIA [None]
